FAERS Safety Report 10161670 (Version 1)
Quarter: 2014Q2

REPORT INFORMATION
  Report Type: Spontaneous
  Country: US (occurrence: None)
  Receive Date: 20140508
  Receipt Date: 20140508
  Transmission Date: 20141212
  Serious: Yes (Other)
  Sender: FDA-Public Use
  Company Number: None

PATIENT
  Age: 7 Year
  Sex: Female
  Weight: 24.95 kg

DRUGS (1)
  1. TAMIFLU [Suspect]
     Indication: INFLUENZA
     Dosage: 2 TSP TWICE DAILY TAKEN BY MOUTH
     Route: 048
     Dates: start: 20140506, end: 20140506

REACTIONS (3)
  - Confusional state [None]
  - Delusion [None]
  - Vomiting [None]
